FAERS Safety Report 5350701-6 (Version None)
Quarter: 2007Q2

REPORT INFORMATION
  Report Type: 
  Country: None (occurrence: None)
  Receive Date: 20070608
  Receipt Date: 20070529
  Transmission Date: 20071010
  Serious: Yes (Hospitalization)
  Sender: FDA-Public Use
  Company Number: CA-JNJFOC-20070506920

PATIENT
  Age: 51 Year
  Sex: Female

DRUGS (2)
  1. REMICADE [Suspect]
     Indication: RHEUMATOID ARTHRITIS
     Route: 042
  2. METHOTREXATE [Concomitant]

REACTIONS (8)
  - HYPOTENSION [None]
  - LOSS OF CONSCIOUSNESS [None]
  - OEDEMA [None]
  - PLEURAL EFFUSION [None]
  - PNEUMONIA STREPTOCOCCAL [None]
  - RENAL FAILURE [None]
  - RHEUMATOID ARTHRITIS [None]
  - ULCER [None]
